FAERS Safety Report 20521427 (Version 2)
Quarter: 2022Q1

REPORT INFORMATION
  Report Type: Spontaneous
  Country: IT (occurrence: IT)
  Receive Date: 20220226
  Receipt Date: 20220303
  Transmission Date: 20220423
  Serious: Yes (Death)
  Sender: FDA-Public Use
  Company Number: None

PATIENT
  Age: 74 Year
  Sex: Female
  Weight: 47 kg

DRUGS (3)
  1. CARBOPLATIN [Suspect]
     Active Substance: CARBOPLATIN
     Indication: Small cell lung cancer
     Dosage: 300 MG
     Route: 041
     Dates: start: 20220207, end: 20220207
  2. ETOPOSIDE [Suspect]
     Active Substance: ETOPOSIDE
     Indication: Small cell lung cancer
     Dosage: 140 MG, QD
     Route: 041
     Dates: start: 20220207, end: 20220209
  3. TECENTRIQ [Suspect]
     Active Substance: ATEZOLIZUMAB
     Indication: Product used for unknown indication
     Dosage: 1200 MG
     Route: 041
     Dates: start: 20220207, end: 20220207

REACTIONS (3)
  - Depressed level of consciousness [Fatal]
  - Oedema [Fatal]
  - Neutropenia [Fatal]

NARRATIVE: CASE EVENT DATE: 20220217
